FAERS Safety Report 20047416 (Version 5)
Quarter: 2022Q3

REPORT INFORMATION
  Report Type: Spontaneous
  Country: US (occurrence: US)
  Receive Date: 20211109
  Receipt Date: 20220712
  Transmission Date: 20221027
  Serious: Yes (Hospitalization)
  Sender: FDA-Public Use
  Company Number: US-BIOGEN-2021BI01065096

PATIENT
  Age: 67 Year
  Sex: Female

DRUGS (1)
  1. TYSABRI [Suspect]
     Active Substance: NATALIZUMAB
     Indication: Multiple sclerosis
     Route: 050
     Dates: start: 20090611

REACTIONS (7)
  - Renal mass [Not Recovered/Not Resolved]
  - Unresponsive to stimuli [Recovered/Resolved]
  - Oxygen saturation decreased [Recovered/Resolved]
  - Fall [Recovered/Resolved]
  - Hypothermia [Recovered/Resolved]
  - Dehydration [Recovered/Resolved]
  - Aphasia [Unknown]

NARRATIVE: CASE EVENT DATE: 20210901
